FAERS Safety Report 4440078-2 (Version None)
Quarter: 2004Q3

REPORT INFORMATION
  Report Type: 
  Country: None (occurrence: None)
  Receive Date: 20040902
  Receipt Date: 20040824
  Transmission Date: 20050211
  Serious: Yes (Hospitalization)
  Sender: FDA-Public Use
  Company Number: GB-MERCK-0408GBR00226

PATIENT
  Age: 44 Year
  Weight: 88 kg

DRUGS (2)
  1. ZETIA [Suspect]
     Indication: BLOOD CHOLESTEROL INCREASED
     Route: 048
     Dates: start: 20040601
  2. LITHIUM CARBONATE [Concomitant]
     Indication: HYPOMANIA
     Route: 048

REACTIONS (1)
  - HYPOMANIA [None]
